FAERS Safety Report 5098079-X (Version None)
Quarter: 2006Q3

REPORT INFORMATION
  Report Type: 
  Country: None (occurrence: None)
  Receive Date: 20060906
  Receipt Date: 20060405
  Transmission Date: 20061208
  Serious: No
  Sender: FDA-Public Use
  Company Number: US-GLAXOSMITHKLINE-A0600751A

PATIENT
  Age: 51 Year
  Sex: Female
  Weight: 73.6 kg

DRUGS (1)
  1. REQUIP [Suspect]
     Indication: RESTLESS LEGS SYNDROME
     Dosage: 1MG AT NIGHT
     Route: 048
     Dates: start: 20060313, end: 20060320

REACTIONS (4)
  - HAEMANGIOMA [None]
  - HAEMATURIA [None]
  - HIATUS HERNIA [None]
  - PROTEINURIA [None]
